FAERS Safety Report 15007529 (Version 1)
Quarter: 2018Q2

REPORT INFORMATION
  Report Type: Spontaneous
  Country: US (occurrence: US)
  Receive Date: 20180613
  Receipt Date: 20180613
  Transmission Date: 20180711
  Serious: No
  Sender: FDA-Public Use
  Company Number: US-BAYER-2018-111793

PATIENT
  Age: 56 Year
  Sex: Male

DRUGS (1)
  1. ULTRAVIST [Suspect]
     Active Substance: IOPROMIDE
     Indication: EMBOLISM
     Dosage: 150 ML, ONCE
     Route: 042
     Dates: start: 20180608, end: 20180608

REACTIONS (2)
  - Epistaxis [None]
  - Nausea [None]

NARRATIVE: CASE EVENT DATE: 20180608
